FAERS Safety Report 17123249 (Version 1)
Quarter: 2019Q4

REPORT INFORMATION
  Report Type: Spontaneous
  Country: US (occurrence: US)
  Receive Date: 20191206
  Receipt Date: 20191206
  Transmission Date: 20200122
  Serious: No
  Sender: FDA-Public Use
  Company Number: US-ASTRAZENECA-2019SF60132

PATIENT
  Sex: Female
  Weight: 85.7 kg

DRUGS (3)
  1. BYDUREON [Suspect]
     Active Substance: EXENATIDE
     Indication: DIABETES MELLITUS
     Route: 058
  2. ACTOS PLUS METFORMIN [Concomitant]
     Indication: DIABETES MELLITUS
     Route: 065
  3. BYDUREON BCISE [Suspect]
     Active Substance: EXENATIDE
     Indication: DIABETES MELLITUS
     Route: 058

REACTIONS (8)
  - Weight decreased [Recovered/Resolved]
  - Product storage error [Unknown]
  - Anaemia [Not Recovered/Not Resolved]
  - Weight increased [Not Recovered/Not Resolved]
  - Sensation of foreign body [Recovered/Resolved]
  - Injection site pain [Not Recovered/Not Resolved]
  - Intentional device misuse [Recovered/Resolved]
  - Device malfunction [Unknown]
